FAERS Safety Report 4575685-X (Version None)
Quarter: 2005Q1

REPORT INFORMATION
  Report Type: 
  Country: None (occurrence: None)
  Receive Date: 20050127
  Receipt Date: 20040929
  Transmission Date: 20050727
  Serious: No
  Sender: FDA-Public Use
  Company Number: USA040979597

PATIENT
  Age: 6 Year
  Sex: Female
  Weight: 27 kg

DRUGS (2)
  1. STRATTERA [Suspect]
     Dosage: 54 MG DAY
     Dates: start: 20030101
  2. FOCALIN [Concomitant]

REACTIONS (2)
  - PRESCRIBED OVERDOSE [None]
  - TRICHORRHEXIS [None]
